FAERS Safety Report 4316718-5 (Version None)
Quarter: 2004Q1

REPORT INFORMATION
  Report Type: 
  Country: None (occurrence: None)
  Receive Date: 20040311
  Receipt Date: 20040225
  Transmission Date: 20041129
  Serious: Yes (Hospitalization, Disabling, Other)
  Sender: FDA-Public Use
  Company Number: US-JNJFOC-20030903694

PATIENT
  Age: 30 Year
  Sex: Female
  Weight: 69.4003 kg

DRUGS (9)
  1. REMICADE [Suspect]
     Indication: CROHN'S DISEASE
     Dosage: INTRAVENOUS
     Route: 042
     Dates: start: 20020829
  2. REMICADE [Suspect]
     Indication: CROHN'S DISEASE
     Dosage: INTRAVENOUS
     Route: 042
     Dates: start: 20020912
  3. REMICADE [Suspect]
     Indication: CROHN'S DISEASE
     Dosage: INTRAVENOUS
     Route: 042
     Dates: start: 20021010
  4. REMICADE [Suspect]
     Indication: CROHN'S DISEASE
     Dosage: INTRAVENOUS
     Route: 042
     Dates: start: 20021212
  5. PENTASA [Concomitant]
  6. CLELEXA (CITALOPRAM HYDROBROMIDE) [Concomitant]
  7. HYDROCHLOROTHIAZIDE [Concomitant]
  8. PROTONIX [Concomitant]
  9. PURENTHAL (ALL OTHER THERAPEUTIC PRODUCTS) [Concomitant]

REACTIONS (55)
  - ABDOMINAL DISTENSION [None]
  - ABDOMINAL PAIN UPPER [None]
  - ACTIVITIES OF DAILY LIVING IMPAIRED [None]
  - ARTHRALGIA [None]
  - BLISTER [None]
  - BRONCHITIS [None]
  - CELLULITIS [None]
  - CONDITION AGGRAVATED [None]
  - COUGH [None]
  - CRYING [None]
  - DEPRESSION [None]
  - DIARRHOEA [None]
  - DIFFICULTY IN WALKING [None]
  - DUODENAL ULCER [None]
  - DYSPHAGIA [None]
  - DYSPHONIA [None]
  - EAR PAIN [None]
  - ECCHYMOSIS [None]
  - EMOTIONAL DISTRESS [None]
  - ERYTHEMA [None]
  - EXOSTOSIS [None]
  - FALL [None]
  - FATIGUE [None]
  - FOLLICULITIS [None]
  - GASTRITIS EROSIVE [None]
  - HYPOAESTHESIA [None]
  - ILL-DEFINED DISORDER [None]
  - INJURY [None]
  - INTESTINAL MUCOSAL HYPERTROPHY [None]
  - IRON DEFICIENCY ANAEMIA [None]
  - JOINT STIFFNESS [None]
  - LABYRINTHITIS [None]
  - LOCALISED OSTEOARTHRITIS [None]
  - MOOD ALTERED [None]
  - MYALGIA [None]
  - NEUROPATHY [None]
  - ODYNOPHAGIA [None]
  - OTITIS MEDIA [None]
  - PAIN [None]
  - PAIN IN EXTREMITY [None]
  - PHARYNGITIS [None]
  - POLYMYALGIA [None]
  - POSTNASAL DRIP [None]
  - PUBIC PAIN [None]
  - PYREXIA [None]
  - RASH PUSTULAR [None]
  - SINUS CONGESTION [None]
  - SINUS DISORDER [None]
  - SINUSITIS [None]
  - SLE ARTHRITIS [None]
  - STAPHYLOCOCCAL INFECTION [None]
  - SWELLING [None]
  - VERTIGO [None]
  - VICTIM OF CRIME [None]
  - VOMITING [None]
